FAERS Safety Report 6840086-8 (Version None)
Quarter: 2010Q3

REPORT INFORMATION
  Report Type: 
  Country: None (occurrence: None)
  Receive Date: 20100709
  Receipt Date: 20100626
  Transmission Date: 20110219
  Serious: Yes (Hospitalization)
  Sender: FDA-Public Use
  Company Number: 230133M09USA

PATIENT
  Age: 61 Year
  Sex: Female
  Weight: 64 kg

DRUGS (7)
  1. REBIF [Suspect]
     Indication: RELAPSING-REMITTING MULTIPLE SCLEROSIS
     Dosage: 44 MCG, 3 IN 1 WK, SUBCUTANEOUS
     Route: 058
     Dates: start: 20061215
  2. LEXAPRO [Concomitant]
  3. ENABLEX (DARIFENACIN) [Concomitant]
  4. ZOCOR (ZOCOR CARDIO ASS) [Concomitant]
  5. BENTYL [Concomitant]
  6. CITRICAL (CALCIUM CARBONATE) [Concomitant]
  7. MULTIVITAMIN (MULTIVITAMIN) [Concomitant]

REACTIONS (15)
  - BLOOD PRESSURE DIASTOLIC INCREASED [None]
  - CEREBRAL ATROPHY [None]
  - CEREBRAL VENTRICLE DILATATION [None]
  - DEPRESSION [None]
  - DIZZINESS [None]
  - ENTEROCOCCAL INFECTION [None]
  - FALL [None]
  - GAIT DISTURBANCE [None]
  - HEART RATE INCREASED [None]
  - LEFT ATRIAL DILATATION [None]
  - MICTURITION URGENCY [None]
  - SYNCOPE [None]
  - UPPER RESPIRATORY TRACT INFECTION [None]
  - URINARY INCONTINENCE [None]
  - URINARY TRACT INFECTION [None]
